FAERS Safety Report 5221809-0 (Version None)
Quarter: 2007Q1

REPORT INFORMATION
  Report Type: 
  Country: None (occurrence: None)
  Receive Date: 20070125
  Receipt Date: 20070125
  Transmission Date: 20070707
  Serious: Yes (Other)
  Sender: FDA-Public Use
  Company Number: None

PATIENT
  Age: 38 Year
  Sex: Female
  Weight: 153.3158 kg

DRUGS (1)
  1. HEPARIN [Suspect]
     Dates: start: 20060116, end: 20060117

REACTIONS (1)
  - MYOCARDIAL INFARCTION [None]
